FAERS Safety Report 22125363 (Version 1)
Quarter: 2023Q1

REPORT INFORMATION
  Report Type: Report from Study
  Country: ES (occurrence: ES)
  Receive Date: 20230322
  Receipt Date: 20230322
  Transmission Date: 20230418
  Serious: Yes (Hospitalization)
  Sender: FDA-Public Use
  Company Number: None

PATIENT
  Age: 17 Year
  Sex: Female

DRUGS (7)
  1. FYCOMPA [Interacting]
     Active Substance: PERAMPANEL
     Indication: Lennox-Gastaut syndrome
     Route: 048
     Dates: start: 20190619, end: 202211
  2. PHENYTOIN [Interacting]
     Active Substance: PHENYTOIN
     Indication: Lennox-Gastaut syndrome
     Dosage: 100MG AT BREAKFAST AND 125MG AT DINNER
     Route: 048
     Dates: start: 20190131, end: 202211
  3. PHENYTOIN [Interacting]
     Active Substance: PHENYTOIN
     Dosage: DOSE REDUCED (DOSE AND FREQUENCY UNKNOWN)
     Route: 048
     Dates: start: 202211
  4. INOVELON [Concomitant]
     Active Substance: RUFINAMIDE
     Indication: Lennox-Gastaut syndrome
     Dosage: 800 MG AT BREAKFAST AND 1200 MG AT DINNER
     Route: 048
  5. CLOBAZAM [Concomitant]
     Active Substance: CLOBAZAM
     Indication: Lennox-Gastaut syndrome
     Route: 048
     Dates: start: 20220418
  6. ETOSUXIMIDA FAES [Concomitant]
     Indication: Lennox-Gastaut syndrome
     Route: 048
     Dates: start: 20200115
  7. CANNABIDIOL [Concomitant]
     Active Substance: CANNABIDIOL
     Indication: Product used for unknown indication
     Dosage: 25 MG AT BREAKFAST AND 30 MG AT DINNER
     Dates: start: 20220301

REACTIONS (4)
  - Mydriasis [Recovered/Resolved]
  - Dizziness [Recovered/Resolved]
  - Dysarthria [Recovered/Resolved]
  - Drug interaction [Recovered/Resolved]

NARRATIVE: CASE EVENT DATE: 20221105
